FAERS Safety Report 13933054 (Version 2)
Quarter: 2017Q4

REPORT INFORMATION
  Report Type: Spontaneous
  Country: JP (occurrence: JP)
  Receive Date: 20170904
  Receipt Date: 20171110
  Transmission Date: 20180320
  Serious: Yes (Other)
  Sender: FDA-Public Use
  Company Number: JP-PFIZER INC-2017379216

PATIENT
  Age: 78 Year
  Sex: Male
  Weight: 50 kg

DRUGS (5)
  1. TEICOPLANIN [Concomitant]
     Active Substance: TEICOPLANIN
     Dosage: 400 MG/DAY
     Route: 041
  2. LINEZOLID. [Suspect]
     Active Substance: LINEZOLID
     Dosage: 1200 MG/DAY
  3. ZOSYN [Suspect]
     Active Substance: PIPERACILLIN SODIUM\TAZOBACTAM SODIUM
     Indication: PNEUMONIA NECROTISING
     Dosage: 13.5 G/DAY
     Route: 042
  4. CLINDAMYCIN HYDROCHLORIDE. [Concomitant]
     Active Substance: CLINDAMYCIN HYDROCHLORIDE
     Dosage: 1200 MG/DAY
  5. HUMAN NORMAL IMMUNOGLOBULIN [Concomitant]
     Active Substance: HUMAN IMMUNOGLOBULIN G
     Dosage: 5 G/DAY
     Route: 042

REACTIONS (2)
  - Platelet count decreased [Unknown]
  - Pemphigoid [Recovering/Resolving]
